FAERS Safety Report 19699423 (Version 1)
Quarter: 2021Q3

REPORT INFORMATION
  Report Type: Spontaneous
  Country: US (occurrence: US)
  Receive Date: 20210813
  Receipt Date: 20210813
  Transmission Date: 20211014
  Serious: Yes (Hospitalization)
  Sender: FDA-Public Use
  Company Number: US-PFIZER INC-202100985864

PATIENT
  Age: 52 Year
  Sex: Female

DRUGS (2)
  1. VTX 2337 [Suspect]
     Active Substance: MOTOLIMOD
     Indication: OVARIAN EPITHELIAL CANCER METASTATIC
     Dosage: UNK, CYCLIC
  2. DOXORUBICIN HCL [Suspect]
     Active Substance: DOXORUBICIN HYDROCHLORIDE
     Indication: OVARIAN EPITHELIAL CANCER METASTATIC
     Dosage: UNK, CYCLIC

REACTIONS (1)
  - Toxic erythema of chemotherapy [Recovering/Resolving]
